FAERS Safety Report 6433187-X (Version None)
Quarter: 2009Q4

REPORT INFORMATION
  Report Type: 
  Country: None (occurrence: None)
  Receive Date: 20091109
  Receipt Date: 20091104
  Transmission Date: 20100525
  Serious: Yes (Death)
  Sender: FDA-Public Use
  Company Number: PHHY2009NO48019

PATIENT

DRUGS (2)
  1. GLEEVEC [Suspect]
     Indication: GASTROINTESTINAL STROMAL TUMOUR
     Dosage: 400 MG UNK
  2. GLEEVEC [Suspect]
     Dosage: 200 MG, BID

REACTIONS (2)
  - ADVERSE EVENT [None]
  - DEATH [None]
